FAERS Safety Report 19912368 (Version 1)
Quarter: 2021Q4

REPORT INFORMATION
  Report Type: Spontaneous
  Country: US (occurrence: US)
  Receive Date: 20211004
  Receipt Date: 20211004
  Transmission Date: 20220303
  Serious: Yes (Hospitalization, Other)
  Sender: FDA-Public Use
  Company Number: US-MYLANLABS-2021M1068245

PATIENT
  Age: 46 Year
  Sex: Male

DRUGS (4)
  1. LORAZEPAM [Suspect]
     Active Substance: LORAZEPAM
     Indication: Hyperventilation
     Dosage: UNK
     Route: 042
  2. LORAZEPAM [Suspect]
     Active Substance: LORAZEPAM
     Indication: Respiratory alkalosis
  3. MORPHINE [Suspect]
     Active Substance: MORPHINE
     Indication: Hyperventilation
     Dosage: UNK
     Route: 042
  4. MORPHINE [Suspect]
     Active Substance: MORPHINE
     Indication: Respiratory alkalosis

REACTIONS (3)
  - Drug ineffective for unapproved indication [Unknown]
  - Sedation [Unknown]
  - Off label use [Unknown]
